FAERS Safety Report 17352324 (Version 2)
Quarter: 2020Q1

REPORT INFORMATION
  Report Type: Report from Study
  Country: None (occurrence: US)
  Receive Date: 20200130
  Receipt Date: 20200312
  Transmission Date: 20200409
  Serious: Yes (Other)
  Sender: FDA-Public Use
  Company Number: US-ABBVIE-20K-163-3251218-00

PATIENT
  Sex: Male

DRUGS (1)
  1. HUMIRA [Suspect]
     Active Substance: ADALIMUMAB
     Indication: CROHN^S DISEASE
     Dosage: CITRATE FREE (CF)
     Route: 058

REACTIONS (11)
  - Gluten sensitivity [Not Recovered/Not Resolved]
  - Ulcer [Not Recovered/Not Resolved]
  - Eructation [Not Recovered/Not Resolved]
  - Haematochezia [Not Recovered/Not Resolved]
  - Abdominal pain [Not Recovered/Not Resolved]
  - Small intestinal haemorrhage [Unknown]
  - Gastrointestinal erosion [Unknown]
  - Dermatitis [Not Recovered/Not Resolved]
  - Pyrexia [Recovered/Resolved]
  - Vasculitis [Not Recovered/Not Resolved]
  - Skin papilloma [Not Recovered/Not Resolved]
